FAERS Safety Report 17816724 (Version 1)
Quarter: 2020Q2

REPORT INFORMATION
  Report Type: Report from Study
  Country: IT (occurrence: IT)
  Receive Date: 20200522
  Receipt Date: 20200522
  Transmission Date: 20200714
  Serious: Yes (Hospitalization)
  Sender: FDA-Public Use
  Company Number: IT-PFIZER INC-2020202196

PATIENT
  Age: 67 Year
  Sex: Male

DRUGS (5)
  1. LIORESAL [Suspect]
     Active Substance: BACLOFEN
     Indication: MUSCLE SPASTICITY
     Dosage: 25 MG, 1X/DAY
     Route: 048
     Dates: start: 20180101, end: 20200503
  2. VERAPAMIL [Concomitant]
     Active Substance: VERAPAMIL HYDROCHLORIDE
     Dosage: UNK
  3. XATRAL [ALFUZOSIN HYDROCHLORIDE] [Concomitant]
     Active Substance: ALFUZOSIN
     Dosage: UNK
  4. LYRICA [Suspect]
     Active Substance: PREGABALIN
     Indication: MUSCLE SPASTICITY
     Dosage: 75 MG, 1X/DAY
     Route: 048
     Dates: start: 20190101, end: 20200503
  5. GADRAL [Concomitant]
     Active Substance: MAGALDRATE
     Dosage: UNK

REACTIONS (3)
  - Ileus paralytic [Recovering/Resolving]
  - Gastrointestinal pain [Recovering/Resolving]
  - Vomiting [Recovering/Resolving]

NARRATIVE: CASE EVENT DATE: 20200503
